FAERS Safety Report 21704421 (Version 1)
Quarter: 2022Q4

REPORT INFORMATION
  Report Type: Spontaneous
  Country: CA (occurrence: CA)
  Receive Date: 20221209
  Receipt Date: 20221209
  Transmission Date: 20230113
  Serious: Yes (Other)
  Sender: FDA-Public Use
  Company Number: CA-TEVA-2022-CA-2832747

PATIENT
  Age: 58 Year
  Sex: Male

DRUGS (5)
  1. MERCAPTOPURINE [Suspect]
     Active Substance: MERCAPTOPURINE
     Indication: Product used for unknown indication
     Route: 065
  2. PREDNISONE [Suspect]
     Active Substance: PREDNISONE
     Indication: Product used for unknown indication
     Dosage: 20 MILLIGRAM DAILY;
     Route: 048
  3. CYCLOPHOSPHAMIDE [Suspect]
     Active Substance: CYCLOPHOSPHAMIDE
     Indication: Product used for unknown indication
     Route: 065
  4. SOLU-MEDROL [Suspect]
     Active Substance: METHYLPREDNISOLONE SODIUM SUCCINATE
     Indication: Product used for unknown indication
     Dosage: 3 GRAM DAILY;
     Route: 042
  5. RUXIENCE [Concomitant]
     Active Substance: RITUXIMAB-PVVR
     Indication: Anti-glomerular basement membrane disease
     Route: 042

REACTIONS (1)
  - Pulmonary alveolar haemorrhage [Unknown]
